FAERS Safety Report 5810814-9 (Version None)
Quarter: 2008Q3

REPORT INFORMATION
  Report Type: 
  Country: None (occurrence: None)
  Receive Date: 20080710
  Receipt Date: 20080624
  Transmission Date: 20090109
  Serious: Yes (Death, Life-Threatening, Hospitalization)
  Sender: FDA-Public Use
  Company Number: 2008US000623

PATIENT
  Age: 66 Year
  Sex: Male

DRUGS (9)
  1. TACROLIMUS [Suspect]
     Indication: LIVER TRANSPLANT
     Dosage: 3 MG, UID/QD, ORAL
     Route: 048
     Dates: start: 20071107, end: 20080317
  2. URSODIOL [Concomitant]
  3. ASPIRIN [Concomitant]
  4. MULTIVITAMIN [Concomitant]
  5. DAPSONE [Concomitant]
  6. PREDNISOLONE ACETATE [Concomitant]
  7. LISINOPRIL (LISINOPRIL DIHYDRATE) [Concomitant]
  8. ZOCOR [Concomitant]
  9. TOPROL-XL [Concomitant]

REACTIONS (31)
  - ACUTE MYOCARDIAL INFARCTION [None]
  - ALANINE AMINOTRANSFERASE INCREASED [None]
  - ASPARTATE AMINOTRANSFERASE INCREASED [None]
  - ATRIAL FIBRILLATION [None]
  - B-CELL LYMPHOMA [None]
  - BLOOD ALKALINE PHOSPHATASE INCREASED [None]
  - BLOOD BILIRUBIN INCREASED [None]
  - BLOOD CREATININE INCREASED [None]
  - BLOOD LACTATE DEHYDROGENASE INCREASED [None]
  - COMPUTERISED TOMOGRAM ABNORMAL [None]
  - DISEASE PROGRESSION [None]
  - DISEASE RECURRENCE [None]
  - FEBRILE NEUTROPENIA [None]
  - GASTROINTESTINAL HAEMORRHAGE [None]
  - HAEMATEMESIS [None]
  - HEPATIC FUNCTION ABNORMAL [None]
  - HYPOPERFUSION [None]
  - HYPOTENSION [None]
  - LACTIC ACIDOSIS [None]
  - LIVER FUNCTION TEST ABNORMAL [None]
  - LUNG NEOPLASM [None]
  - LYMPHADENOPATHY [None]
  - MASS [None]
  - RENAL FAILURE ACUTE [None]
  - SEPTIC SHOCK [None]
  - STAPHYLOCOCCAL INFECTION [None]
  - STAPHYLOCOCCAL SEPSIS [None]
  - TUMOUR LYSIS SYNDROME [None]
  - URTICARIA [None]
  - VASOSPASM [None]
  - WHITE BLOOD CELL COUNT DECREASED [None]
